FAERS Safety Report 18510110 (Version 2)
Quarter: 2020Q4

REPORT INFORMATION
  Report Type: Report from Study
  Country: US (occurrence: US)
  Receive Date: 20201117
  Receipt Date: 20201119
  Transmission Date: 20210114
  Serious: Yes (Other)
  Sender: FDA-Public Use
  Company Number: US-PFIZER INC-2020449008

PATIENT
  Age: 64 Year
  Sex: Male

DRUGS (4)
  1. PACLITAXEL. [Suspect]
     Active Substance: PACLITAXEL
     Dosage: 60 MG/M2, CYCLIC (PERMANENT PACLITAXEL DOSE REDUCTION)
  2. PACLITAXEL. [Suspect]
     Active Substance: PACLITAXEL
     Dosage: 70 MG/M2, CYCLIC (DAYS 1 AND 8C)
  3. RAMUCIRUMAB [Suspect]
     Active Substance: RAMUCIRUMAB
     Indication: ADENOCARCINOMA GASTRIC
     Dosage: 8 MG/KG, CYCLIC (ON DAYS 1 AND 15) ALL EIGHT CYCLES
  4. PACLITAXEL. [Suspect]
     Active Substance: PACLITAXEL
     Indication: ADENOCARCINOMA GASTRIC
     Dosage: 80 MG/M2, CYCLIC (ADMINISTERED FOR CYCLE 3 (DAYS 1, 8, AND 15)

REACTIONS (2)
  - Neutropenia [Unknown]
  - Neuropathy peripheral [Recovering/Resolving]
